FAERS Safety Report 18638677 (Version 2)
Quarter: 2021Q1

REPORT INFORMATION
  Report Type: Not Available
  Country: US (occurrence: US)
  Receive Date: 20201218
  Receipt Date: 20210115
  Transmission Date: 20210419
  Serious: Yes (Death)
  Sender: FDA-Public Use
  Company Number: US-NEUROCRINE BIOSCIENCES INC.-2020NBI04610

PATIENT
  Age: 62 Year
  Sex: Male

DRUGS (23)
  1. XANAX [Concomitant]
     Active Substance: ALPRAZOLAM
  2. ACETAMINOPHEN. [Concomitant]
     Active Substance: ACETAMINOPHEN
     Dosage: AS NEEDED FOR GENERAL DISCOMFORT
     Route: 054
     Dates: start: 20201126
  3. AMLODIPINE BESYLATE. [Concomitant]
     Active Substance: AMLODIPINE BESYLATE
     Indication: MYOCARDIAL ISCHAEMIA
     Route: 048
     Dates: start: 20191015
  4. BENZTROPINE MESYLATE. [Concomitant]
     Active Substance: BENZTROPINE MESYLATE
     Indication: TARDIVE DYSKINESIA
     Route: 048
     Dates: start: 20200213
  5. INVEGA [Concomitant]
     Active Substance: PALIPERIDONE
  6. ATROPINE SULFATE. [Concomitant]
     Active Substance: ATROPINE SULFATE
     Dosage: 2 DROPS BY MOUTH EVERY 4 HOURS AS NEEDED FOR SECRETION
     Route: 048
     Dates: start: 20201022
  7. BISACODYL. [Concomitant]
     Active Substance: BISACODYL
     Dosage: 1 DOSAGE FORM FOR BOWEL HEALTH IF NO BM X 3 DAYS
     Route: 054
     Dates: start: 20191021
  8. DEPAKOTE [Concomitant]
     Active Substance: DIVALPROEX SODIUM
     Indication: SCHIZOPHRENIA
     Dosage: DELAYED RELEASE 1 TABLET BY MOUTH ONE TIME A DAY AND 2 TABLETS AT BEDTIME
     Route: 048
     Dates: start: 20201029
  9. POTASSIUM CHLORIDE. [Concomitant]
     Active Substance: POTASSIUM CHLORIDE
     Indication: OEDEMA
     Dosage: EXTENDED RELEASE TABLET
     Route: 048
     Dates: start: 20200821
  10. ZITHROMAX [Concomitant]
     Active Substance: AZITHROMYCIN DIHYDRATE
     Indication: RESPIRATORY TRACT INFECTION
     Dosage: 500 MG X 1 DAY AND 250 MG X 4 DAYS
     Route: 048
     Dates: start: 20201127
  11. BENADRYL [Concomitant]
     Active Substance: DIPHENHYDRAMINE HYDROCHLORIDE
  12. ACETAMINOPHEN. [Concomitant]
     Active Substance: ACETAMINOPHEN
     Dosage: AS NEEDED FOR TEMPERATURE 100 OR ABOVE
     Route: 054
     Dates: start: 20201126
  13. ACETAMINOPHEN. [Concomitant]
     Active Substance: ACETAMINOPHEN
     Dosage: AS NEEDED FOR ELEVATED TEMPERATURE
     Route: 054
     Dates: start: 20201126
  14. DONEPEZIL HCL [Concomitant]
     Active Substance: DONEPEZIL HYDROCHLORIDE
     Indication: MENTAL STATUS CHANGES
     Route: 048
     Dates: start: 20191015
  15. LEXAPRO [Concomitant]
     Active Substance: ESCITALOPRAM OXALATE
     Indication: SCHIZOPHRENIA
     Dosage: AT BEDTIME
     Route: 048
     Dates: start: 20191014
  16. MELATONIN [Concomitant]
     Active Substance: MELATONIN
     Indication: INSOMNIA
     Dosage: AT BEDTIME
     Route: 048
     Dates: start: 20191014
  17. SORBITOL. [Concomitant]
     Active Substance: SORBITOL
     Dosage: 30 ML ORALLY AS NEEDED FOR BOWEL HEALTH IF NO BM X 2 DAYS
     Route: 048
     Dates: start: 20191021
  18. SODIUM PHOSPHATE [Concomitant]
     Active Substance: SODIUM PHOSPHATE
     Dosage: ONE UNIT AS NEEDED FOR BOWEL HEALTH IF NO BOWEL MOVEMENTS FOR 4 DAYS
     Route: 054
     Dates: start: 20191021
  19. INGREZZA [Suspect]
     Active Substance: VALBENAZINE
     Indication: TARDIVE DYSKINESIA
     Route: 048
     Dates: start: 20190910
  20. SEROQUEL [Concomitant]
     Active Substance: QUETIAPINE FUMARATE
  21. LASIX [Concomitant]
     Active Substance: FUROSEMIDE
     Indication: OEDEMA
     Route: 048
     Dates: start: 20200821
  22. PRAVASTATIN. [Concomitant]
     Active Substance: PRAVASTATIN
     Dosage: EVENING TIME
     Route: 048
     Dates: start: 20191014
  23. CLOZAPINE. [Concomitant]
     Active Substance: CLOZAPINE
     Indication: SCHIZOPHRENIA
     Dosage: AT BEDTIME
     Route: 048
     Dates: start: 20200722

REACTIONS (1)
  - Acute myocardial infarction [Fatal]

NARRATIVE: CASE EVENT DATE: 20201211
